FAERS Safety Report 5902314-2 (Version None)
Quarter: 2008Q3

REPORT INFORMATION
  Report Type: 
  Country: None (occurrence: None)
  Receive Date: 20080929
  Receipt Date: 20080923
  Transmission Date: 20090109
  Serious: No
  Sender: FDA-Public Use
  Company Number: US-B.I. PHARMACEUTICALS,INC./RIDGEFIELD-2008-BP-14858BP

PATIENT
  Age: 68 Year
  Sex: Female

DRUGS (1)
  1. COMBIVENT [Suspect]
     Indication: ASTHMA
     Dosage: 12PUF
     Route: 055
     Dates: start: 19980101

REACTIONS (3)
  - COUGH [None]
  - DYSPNOEA [None]
  - LARYNGITIS [None]
